FAERS Safety Report 8759302 (Version 3)
Quarter: 2012Q4

REPORT INFORMATION
  Report Type: 
  Country: FR (occurrence: FR)
  Receive Date: 20120829
  Receipt Date: 20120921
  Transmission Date: 20130627
  Serious: Yes (Hospitalization)
  Sender: FDA-Public Use
  Company Number: FR-ABBOTT-12P-056-0972724-00

PATIENT
  Age: 53 Year
  Sex: Male

DRUGS (6)
  1. HUMIRA 40 MG/ 0.8 ML PRE-FILLED SYRINGE [Suspect]
     Indication: RHEUMATOID ARTHRITIS
     Route: 058
     Dates: start: 201103, end: 20120401
  2. METHOTREXATE [Suspect]
     Indication: RHEUMATOID ARTHRITIS
     Route: 048
     Dates: start: 2011
  3. LEVOTHTOX [Concomitant]
     Indication: HYPOTHYROIDISM
     Route: 048
  4. BIPROFENID [Concomitant]
     Indication: RHEUMATOID ARTHRITIS
     Route: 048
  5. INEXIUM [Concomitant]
     Indication: PRODUCT USED FOR UNKNOWN INDICATION
     Route: 048
  6. ACTISKENAN [Concomitant]
     Indication: PAIN
     Dosage: If needed
     Route: 048

REACTIONS (5)
  - Lung disorder [Recovered/Resolved with Sequelae]
  - Pleural effusion [Recovered/Resolved with Sequelae]
  - Alcohol poisoning [Unknown]
  - Emphysema [Unknown]
  - Bronchopneumonia [Unknown]
